FAERS Safety Report 11086604 (Version 1)
Quarter: 2015Q2

REPORT INFORMATION
  Report Type: Spontaneous
  Country: GB (occurrence: GB)
  Receive Date: 20150504
  Receipt Date: 20150504
  Transmission Date: 20150821
  Serious: Yes (Disabling, Other)
  Sender: FDA-Public Use
  Company Number: GB-ACCORD-030372

PATIENT
  Age: 19 Year
  Sex: Female
  Weight: 73.02 kg

DRUGS (11)
  1. DIHYDROCODEINE [Suspect]
     Active Substance: DIHYDROCODEINE
     Indication: BACK PAIN
     Route: 048
     Dates: start: 20150413, end: 20150415
  2. DIAZEPAM. [Concomitant]
     Active Substance: DIAZEPAM
  3. IBUPROFEN. [Concomitant]
     Active Substance: IBUPROFEN
  4. TRAMADOL/TRAMADOL HYDROCHLORIDE [Suspect]
     Active Substance: TRAMADOL HYDROCHLORIDE
     Indication: BACK PAIN
     Route: 048
     Dates: start: 20150415
  5. CODEINE [Suspect]
     Active Substance: CODEINE
     Indication: BACK PAIN
     Route: 048
     Dates: start: 20150301
  6. LORATADINE. [Concomitant]
     Active Substance: LORATADINE
  7. COCODAMOL [Concomitant]
     Active Substance: ACETAMINOPHEN\CODEINE PHOSPHATE
  8. BUTRANS [Concomitant]
     Active Substance: BUPRENORPHINE
  9. ORAMORPH SR SUSTAINED RELEASE [Concomitant]
     Active Substance: MORPHINE SULFATE
  10. NAPROXEN. [Concomitant]
     Active Substance: NAPROXEN
  11. PARACETAMOL [Concomitant]
     Active Substance: ACETAMINOPHEN

REACTIONS (14)
  - Feeling drunk [Not Recovered/Not Resolved]
  - Hunger [Not Recovered/Not Resolved]
  - Amnesia [Not Recovered/Not Resolved]
  - Unresponsive to stimuli [Recovered/Resolved]
  - Fatigue [Not Recovered/Not Resolved]
  - Euphoric mood [Not Recovered/Not Resolved]
  - Confusional state [Recovering/Resolving]
  - Dry mouth [Recovered/Resolved with Sequelae]
  - Pruritus [Not Recovered/Not Resolved]
  - Anxiety [Not Recovered/Not Resolved]
  - Dysarthria [Recovered/Resolved with Sequelae]
  - Hallucination [Not Recovered/Not Resolved]
  - Panic attack [Not Recovered/Not Resolved]
  - Coagulation time prolonged [Recovered/Resolved with Sequelae]

NARRATIVE: CASE EVENT DATE: 20150416
